FAERS Safety Report 5273167-3 (Version None)
Quarter: 2007Q1

REPORT INFORMATION
  Report Type: 
  Country: None (occurrence: None)
  Receive Date: 20070322
  Receipt Date: 20070316
  Transmission Date: 20070707
  Serious: Yes (Other)
  Sender: FDA-Public Use
  Company Number: NO-PFIZER INC-2007019311

PATIENT
  Sex: Female

DRUGS (5)
  1. SERTRALINE [Suspect]
     Indication: PANIC REACTION
  2. SERTRALINE [Suspect]
     Indication: ANXIETY
  3. SERTRALINE [Suspect]
     Indication: PANIC ATTACK
  4. SERTRALINE [Suspect]
     Indication: DEPRESSION
  5. YASMIN [Concomitant]
     Indication: CONTRACEPTION

REACTIONS (10)
  - CHEST PAIN [None]
  - COLD SWEAT [None]
  - DROOLING [None]
  - DYSMENORRHOEA [None]
  - EYE PAIN [None]
  - FATIGUE [None]
  - INSOMNIA [None]
  - LOSS OF CONSCIOUSNESS [None]
  - MIGRAINE [None]
  - VISUAL ACUITY REDUCED [None]
